FAERS Safety Report 18373327 (Version 4)
Quarter: 2022Q2

REPORT INFORMATION
  Report Type: Report from Study
  Country: US (occurrence: US)
  Receive Date: 20201012
  Receipt Date: 20220522
  Transmission Date: 20220720
  Serious: Yes (Hospitalization, Other)
  Sender: FDA-Public Use
  Company Number: US-JNJFOC-20200935935

PATIENT
  Age: 73 Year
  Sex: Female
  Weight: 95.794 kg

DRUGS (23)
  1. MACITENTAN [Suspect]
     Active Substance: MACITENTAN
     Indication: Pulmonary arterial hypertension
     Route: 048
     Dates: start: 20200817, end: 20200922
  2. TYVASO [Suspect]
     Active Substance: TREPROSTINIL
     Indication: Product used for unknown indication
     Dosage: 60-72 UG (10-12 BREATHS), 4 TIMES A DAY AT 3 BREATHS EACH
     Route: 055
     Dates: start: 20200713
  3. REVATIO [Concomitant]
     Active Substance: SILDENAFIL CITRATE
  4. AMLODIPINE [Concomitant]
     Active Substance: AMLODIPINE BESYLATE
  5. ALBUTEROL SULFATE [Concomitant]
     Active Substance: ALBUTEROL SULFATE
  6. ALLOPURINOL [Concomitant]
     Active Substance: ALLOPURINOL
  7. ASPIRIN [Concomitant]
     Active Substance: ASPIRIN
  8. SYMBICORT [Concomitant]
     Active Substance: BUDESONIDE\FORMOTEROL FUMARATE DIHYDRATE
     Dosage: 160-4.5 MCG/ ACTUATION
  9. COLACE [Concomitant]
     Active Substance: DOCUSATE SODIUM
  10. CYMBALTA [Concomitant]
     Active Substance: DULOXETINE HYDROCHLORIDE
  11. FLONASE [Concomitant]
     Active Substance: FLUTICASONE PROPIONATE
  12. LASIX [Concomitant]
     Active Substance: FUROSEMIDE
  13. IMDUR [Concomitant]
     Active Substance: ISOSORBIDE MONONITRATE
  14. CLARITIN [Concomitant]
     Active Substance: LORATADINE
  15. LOPRESSOR [Concomitant]
     Active Substance: METOPROLOL TARTRATE
  16. VITAMINS [Concomitant]
     Active Substance: VITAMINS
  17. FISH OIL [Concomitant]
     Active Substance: FISH OIL
  18. POTASSIUM CHLORIDE [Concomitant]
     Active Substance: POTASSIUM CHLORIDE
  19. PROCHLORPERAZINE MALEATE [Concomitant]
     Active Substance: PROCHLORPERAZINE MALEATE
  20. BRILINTA [Concomitant]
     Active Substance: TICAGRELOR
  21. DESYREL [Concomitant]
     Active Substance: TRAZODONE HYDROCHLORIDE
  22. TREPROSTINIL [Concomitant]
     Active Substance: TREPROSTINIL
  23. OXYGEN [Concomitant]
     Active Substance: OXYGEN
     Route: 045

REACTIONS (10)
  - Acute left ventricular failure [Recovered/Resolved]
  - Pulmonary arterial hypertension [Unknown]
  - Weight decreased [Recovering/Resolving]
  - Dehydration [Recovering/Resolving]
  - Nausea [Recovered/Resolved]
  - Gastroenteritis [Recovered/Resolved]
  - Headache [Unknown]
  - Vomiting [Recovered/Resolved]
  - Peripheral swelling [Recovered/Resolved]
  - Airway burns [Recovered/Resolved]

NARRATIVE: CASE EVENT DATE: 20200921
